FAERS Safety Report 10864269 (Version 3)
Quarter: 2015Q1

REPORT INFORMATION
  Report Type: Spontaneous
  Country: JP (occurrence: JP)
  Receive Date: 20150224
  Receipt Date: 20150326
  Transmission Date: 20150721
  Serious: Yes (Hospitalization, Other)
  Sender: FDA-Public Use
  Company Number: JP-009507513-1502JPN009133

PATIENT
  Age: 79 Year
  Sex: Male
  Weight: 57 kg

DRUGS (10)
  1. MOSAPRIDE CITRATE [Concomitant]
     Active Substance: MOSAPRIDE CITRATE
     Dosage: 15 MG, TID
     Route: 048
  2. ROZEREM [Concomitant]
     Active Substance: RAMELTEON
     Indication: INSOMNIA
     Dosage: 8 MG, QD
     Route: 048
     Dates: start: 20141229
  3. BELSOMRA [Suspect]
     Active Substance: SUVOREXANT
     Indication: INSOMNIA
     Dosage: 15 MG, QD
     Route: 048
     Dates: start: 20150119, end: 20150120
  4. AVOLVE [Concomitant]
     Active Substance: DUTASTERIDE
     Dosage: 0.5 MG, QD
     Route: 048
  5. SENNARIDE [Concomitant]
     Active Substance: SENNOSIDES A AND B
     Dosage: 12 MG, QD
     Route: 048
  6. REFLEX [Concomitant]
     Active Substance: MIRTAZAPINE
     Indication: DEPRESSIVE SYMPTOM
     Dosage: 15 MG, QD
     Route: 048
     Dates: start: 20141120, end: 20150116
  7. URIEF [Concomitant]
     Active Substance: SILODOSIN
     Dosage: 8 G, QD
     Route: 048
  8. DONEPEZIL HYDROCHLORIDE. [Concomitant]
     Active Substance: DONEPEZIL HYDROCHLORIDE
     Dosage: 5 MG, QD
     Route: 048
     Dates: start: 20150107
  9. YOKU-KAN-SAN [Concomitant]
     Indication: INSOMNIA
     Dosage: 7.5 MG, TID, FORMULATION: POR
     Route: 048
     Dates: start: 20150109
  10. RABEPRAZOLE SODIUM. [Concomitant]
     Active Substance: RABEPRAZOLE SODIUM
     Dosage: 20 MG, QD
     Route: 048

REACTIONS (2)
  - Delirium [Not Recovered/Not Resolved]
  - Poriomania [Recovered/Resolved]

NARRATIVE: CASE EVENT DATE: 201501
